FAERS Safety Report 12573131 (Version 1)
Quarter: 2016Q3

REPORT INFORMATION
  Report Type: Spontaneous
  Country: US (occurrence: None)
  Receive Date: 20160719
  Receipt Date: 20160719
  Transmission Date: 20161109
  Serious: Yes (Other)
  Sender: FDA-Public Use
  Company Number: None

PATIENT
  Age: 28 Year
  Sex: Male
  Weight: 84.37 kg

DRUGS (11)
  1. ALPRAZOLAM. [Concomitant]
     Active Substance: ALPRAZOLAM
  2. NORCO [Concomitant]
     Active Substance: ACETAMINOPHEN\HYDROCODONE BITARTRATE
  3. B-12 VITAMIN [Concomitant]
  4. IBUPROFEN. [Concomitant]
     Active Substance: IBUPROFEN
  5. ZOLOFT [Concomitant]
     Active Substance: SERTRALINE HYDROCHLORIDE
  6. LUNESTA [Concomitant]
     Active Substance: ESZOPICLONE
  7. MELOXICAM. [Concomitant]
     Active Substance: MELOXICAM
  8. SUBLINGUAL [Concomitant]
  9. AMBIEN [Suspect]
     Active Substance: ZOLPIDEM TARTRATE
     Indication: INSOMNIA
     Route: 048
     Dates: end: 20160305
  10. TYLENOL [Concomitant]
     Active Substance: ACETAMINOPHEN
  11. METHOCAEBOMOL [Concomitant]

REACTIONS (6)
  - Legal problem [None]
  - Confusional state [None]
  - Amnesia [None]
  - Abnormal sleep-related event [None]
  - Altered state of consciousness [None]
  - Somnambulism [None]

NARRATIVE: CASE EVENT DATE: 20160305
